FAERS Safety Report 17909979 (Version 2)
Quarter: 2020Q3

REPORT INFORMATION
  Report Type: Spontaneous
  Country: US (occurrence: US)
  Receive Date: 20200618
  Receipt Date: 20200805
  Transmission Date: 20201103
  Serious: Yes (Other)
  Sender: FDA-Public Use
  Company Number: US-ASTRAZENECA-2019SF64860

PATIENT
  Age: 69 Year
  Sex: Male
  Weight: 101.6 kg

DRUGS (22)
  1. PRILOSEC [Suspect]
     Active Substance: OMEPRAZOLE MAGNESIUM
     Indication: GASTROOESOPHAGEAL REFLUX DISEASE
     Dosage: 40 MG ONCE/TWICE DAILY
     Route: 048
     Dates: start: 2001, end: 2006
  2. PRILOSEC OTC [Suspect]
     Active Substance: OMEPRAZOLE MAGNESIUM
     Indication: GASTROOESOPHAGEAL REFLUX DISEASE
     Route: 048
     Dates: start: 2000, end: 2017
  3. PRILOSEC [Suspect]
     Active Substance: OMEPRAZOLE MAGNESIUM
     Indication: GASTROOESOPHAGEAL REFLUX DISEASE
     Dosage: GENERIC 40 MG ONCE/TWICE DAILY
     Route: 065
     Dates: start: 2006, end: 2018
  4. ALLOPURINOL. [Concomitant]
     Active Substance: ALLOPURINOL
     Indication: GOUT
     Route: 065
     Dates: start: 2010
  5. LORATADINE. [Concomitant]
     Active Substance: LORATADINE
     Indication: ANTIALLERGIC THERAPY
     Route: 065
  6. FISH OIL [Concomitant]
     Active Substance: FISH OIL
     Route: 065
  7. VITAMIN D3 [Concomitant]
     Active Substance: CHOLECALCIFEROL
     Indication: VITAMIN D DEFICIENCY
     Route: 065
  8. SIMVASTATIN. [Concomitant]
     Active Substance: SIMVASTATIN
     Indication: BLOOD CHOLESTEROL INCREASED
     Route: 065
     Dates: start: 2010
  9. LISINOPRIL. [Concomitant]
     Active Substance: LISINOPRIL
     Indication: BLOOD PRESSURE ABNORMAL
     Route: 065
     Dates: start: 2010
  10. MIRALAX [Concomitant]
     Active Substance: POLYETHYLENE GLYCOL 3350
  11. PRILOSEC [Suspect]
     Active Substance: OMEPRAZOLE MAGNESIUM
     Indication: GASTROOESOPHAGEAL REFLUX DISEASE
     Dosage: FOR VARIOUS DATES AND YEARS
     Route: 048
  12. ATENOLOL. [Concomitant]
     Active Substance: ATENOLOL
  13. PRILOSEC [Suspect]
     Active Substance: OMEPRAZOLE MAGNESIUM
     Indication: GASTROOESOPHAGEAL REFLUX DISEASE
     Route: 048
     Dates: start: 2000, end: 2017
  14. ALLOPURINOL. [Concomitant]
     Active Substance: ALLOPURINOL
     Indication: NEPHROLITHIASIS
     Route: 065
     Dates: start: 2010
  15. COLCHICINE. [Concomitant]
     Active Substance: COLCHICINE
     Indication: GOUT
     Route: 065
  16. CROMOLYN [Concomitant]
     Active Substance: CROMOLYN
  17. SENOKOT [Concomitant]
     Active Substance: SENNOSIDES
     Indication: LAXATIVE SUPPORTIVE CARE
     Route: 065
  18. FLUNISOLIDE. [Concomitant]
     Active Substance: FLUNISOLIDE
  19. PRILOSEC OTC [Suspect]
     Active Substance: OMEPRAZOLE MAGNESIUM
     Indication: GASTROOESOPHAGEAL REFLUX DISEASE
     Dosage: 40 MG ONCE/TWICE DAILY
     Route: 048
     Dates: start: 2001, end: 2006
  20. PRILOSEC OTC [Suspect]
     Active Substance: OMEPRAZOLE MAGNESIUM
     Indication: GASTROOESOPHAGEAL REFLUX DISEASE
     Dosage: FOR VARIOUS DATES AND YEARS
     Route: 048
  21. GEMFIBROZIL. [Concomitant]
     Active Substance: GEMFIBROZIL
     Indication: BLOOD CHOLESTEROL DECREASED
     Route: 065
  22. LORAZEPAM. [Concomitant]
     Active Substance: LORAZEPAM

REACTIONS (4)
  - Chronic kidney disease [Unknown]
  - Renal failure [Not Recovered/Not Resolved]
  - Renal injury [Unknown]
  - Rebound acid hypersecretion [Unknown]

NARRATIVE: CASE EVENT DATE: 2012
